FAERS Safety Report 16090898 (Version 5)
Quarter: 2019Q2

REPORT INFORMATION
  Report Type: Report from Study
  Country: US (occurrence: US)
  Receive Date: 20190319
  Receipt Date: 20190613
  Transmission Date: 20190711
  Serious: Yes (Hospitalization)
  Sender: FDA-Public Use
  Company Number: US-PFIZER INC-2019112016

PATIENT
  Age: 12 Year
  Sex: Male
  Weight: 77.6 kg

DRUGS (24)
  1. CYCLOPHOSPHAMIDE. [Suspect]
     Active Substance: CYCLOPHOSPHAMIDE
     Indication: ACUTE LYMPHOCYTIC LEUKAEMIA
     Dosage: 1840 MG, ONCE
     Route: 042
     Dates: start: 20181015, end: 20181015
  2. INCB018424 [Suspect]
     Active Substance: RUXOLITINIB
     Dosage: 100 MG, 2X/DAY
     Route: 048
     Dates: start: 20190419, end: 20190426
  3. THIOGUANINE [Suspect]
     Active Substance: THIOGUANINE
     Indication: ACUTE LYMPHOCYTIC LEUKAEMIA
     Dosage: 120 MG, 1X/DAY
     Route: 048
     Dates: start: 20190419, end: 20190426
  4. ZOFRAN [Concomitant]
     Active Substance: ONDANSETRON HYDROCHLORIDE
     Dosage: UNK
     Dates: start: 20180809
  5. CYTARABINE. [Suspect]
     Active Substance: CYTARABINE
     Indication: ACUTE LYMPHOCYTIC LEUKAEMIA
     Dosage: 1.38 ML, QD
     Route: 058
     Dates: start: 20181022, end: 20181026
  6. METHOTREXATE SODIUM. [Suspect]
     Active Substance: METHOTREXATE SODIUM
     Indication: ACUTE LYMPHOCYTIC LEUKAEMIA
     Dosage: 8600 MG, ONCE
     Route: 042
     Dates: start: 20181123, end: 20181123
  7. METHOTREXATE SODIUM. [Suspect]
     Active Substance: METHOTREXATE SODIUM
     Indication: ACUTE LYMPHOCYTIC LEUKAEMIA
     Dosage: 15 MG, ONCE
     Route: 037
     Dates: start: 20190429, end: 20190429
  8. INCB018424 [Suspect]
     Active Substance: RUXOLITINIB
     Dosage: 100 MG, BID
     Route: 048
     Dates: start: 20190427
  9. THIOGUANINE [Suspect]
     Active Substance: THIOGUANINE
     Dosage: 120 MG, QD
     Route: 048
     Dates: start: 20190427
  10. DUKES MAGIC MOUTHWASH [Concomitant]
     Dosage: UNK
     Dates: start: 20180822
  11. ROCEPHIN [Concomitant]
     Active Substance: CEFTRIAXONE SODIUM
     Dosage: UNK
     Dates: start: 20190423, end: 20190425
  12. CYTARABINE. [Suspect]
     Active Substance: CYTARABINE
     Dosage: 156 MG, QD
     Route: 058
     Dates: start: 20190429
  13. LEUCOVORIN. [Suspect]
     Active Substance: LEUCOVORIN
     Indication: ACUTE LYMPHOCYTIC LEUKAEMIA
     Dosage: 28.6 MG, BID
     Route: 042
     Dates: start: 20190120, end: 20190131
  14. ROXICODONE [Concomitant]
     Active Substance: OXYCODONE HYDROCHLORIDE
     Dosage: UNK
     Dates: start: 20180808
  15. INCB018424 [Suspect]
     Active Substance: RUXOLITINIB
     Dosage: 95 MG, BID
     Route: 048
     Dates: start: 20190110, end: 20190123
  16. VINCRISTINE SULFATE. [Suspect]
     Active Substance: VINCRISTINE SULFATE
     Indication: ACUTE LYMPHOCYTIC LEUKAEMIA
     Dosage: 2 MG, ONCE
     Route: 042
     Dates: start: 20181029, end: 20181029
  17. MERCAPTOPURINE. [Suspect]
     Active Substance: MERCAPTOPURINE
     Indication: ACUTE LYMPHOCYTIC LEUKAEMIA
     Dosage: 100 MG MONDAY TO THURSDAY AND 125 MG FRIDAY TO SUNDAY FOR TWO WEEKS
     Route: 048
     Dates: start: 20181015, end: 20181028
  18. MERCAPTOPURINE. [Suspect]
     Active Substance: MERCAPTOPURINE
     Dosage: 5 MG, QD
     Route: 048
     Dates: start: 20190128, end: 20190129
  19. BACTRIM [Concomitant]
     Active Substance: SULFAMETHOXAZOLE\TRIMETHOPRIM
     Dosage: UNK
     Dates: start: 20180810
  20. VINCRISTINE SULFATE. [Suspect]
     Active Substance: VINCRISTINE SULFATE
     Dosage: 2 MG, ONCE
     Route: 042
     Dates: start: 20190128, end: 20190128
  21. CYTARABINE. [Suspect]
     Active Substance: CYTARABINE
     Dosage: 156 MG, QD
     Route: 058
     Dates: start: 20190419, end: 20190422
  22. INCB018424 [Suspect]
     Active Substance: RUXOLITINIB
     Indication: ACUTE LYMPHOCYTIC LEUKAEMIA
     Dosage: 90 MG, BID
     Route: 048
     Dates: start: 20181015, end: 20181028
  23. CYCLOPHOSPHAMIDE. [Suspect]
     Active Substance: CYCLOPHOSPHAMIDE
     Dosage: 2080 MG, ONCE
     Route: 042
     Dates: start: 20190419
  24. NEURONTIN [Concomitant]
     Active Substance: GABAPENTIN
     Dosage: UNK
     Dates: start: 20181001

REACTIONS (5)
  - Febrile neutropenia [Recovered/Resolved]
  - Febrile neutropenia [Recovered/Resolved]
  - Thrombocytopenia [Not Recovered/Not Resolved]
  - Parainfluenzae virus infection [Recovered/Resolved]
  - Venoocclusive liver disease [Not Recovered/Not Resolved]

NARRATIVE: CASE EVENT DATE: 20181101
